FAERS Safety Report 9516896 (Version 2)
Quarter: 2013Q4

REPORT INFORMATION
  Report Type: Spontaneous
  Country: NL (occurrence: NL)
  Receive Date: 20130911
  Receipt Date: 20131106
  Transmission Date: 20140711
  Serious: Yes (Other)
  Sender: FDA-Public Use
  Company Number: NL-BAXTER-2013BAX035136

PATIENT
  Sex: Female

DRUGS (3)
  1. KIOVIG 100 MG/ML OPLOSSING VOOR INFUSIE (20 G/200 ML) [Suspect]
     Indication: CHRONIC INFLAMMATORY DEMYELINATING POLYRADICULONEUROPATHY
     Route: 065
  2. KIOVIG 100 MG/ML OPLOSSING VOOR INFUSIE (20 G/200 ML) [Suspect]
     Indication: OFF LABEL USE
  3. TAVEGYL [Concomitant]
     Indication: PROPHYLAXIS

REACTIONS (5)
  - Hypersensitivity [Unknown]
  - Malaise [Unknown]
  - Swelling face [Unknown]
  - Periorbital contusion [Unknown]
  - Nausea [Unknown]
